FAERS Safety Report 24388401 (Version 2)
Quarter: 2024Q4

REPORT INFORMATION
  Report Type: Spontaneous
  Country: TW (occurrence: TW)
  Receive Date: 20241002
  Receipt Date: 20241004
  Transmission Date: 20250115
  Serious: Yes (Death, Other)
  Sender: MERCK
  Company Number: TW-009507513-2409TWN010197

PATIENT
  Age: 70 Year
  Sex: Male

DRUGS (2)
  1. PEMBROLIZUMAB [Suspect]
     Active Substance: PEMBROLIZUMAB
     Indication: Non-small cell lung cancer
     Dosage: UNK
  2. CISPLATIN [Suspect]
     Active Substance: CISPLATIN
     Indication: Non-small cell lung cancer
     Dosage: UNK

REACTIONS (3)
  - Death [Fatal]
  - Lung lobectomy [Unknown]
  - Non-small cell lung cancer recurrent [Unknown]
